FAERS Safety Report 21107886 (Version 2)
Quarter: 2022Q3

REPORT INFORMATION
  Report Type: Report from Study
  Country: US (occurrence: US)
  Receive Date: 20220720
  Receipt Date: 20220730
  Transmission Date: 20221026
  Serious: No
  Sender: FDA-Public Use
  Company Number: US-SA-SAC20220715000110

PATIENT
  Age: 50 Year
  Sex: Female
  Weight: 59.8 kg

DRUGS (2)
  1. DUPIXENT [Suspect]
     Active Substance: DUPILUMAB
     Indication: Dermatitis atopic
     Dosage: 600 MG, 1X
     Route: 058
     Dates: start: 20220622, end: 20220622
  2. DUPIXENT [Suspect]
     Active Substance: DUPILUMAB
     Dosage: 300 MG, QOW
     Route: 058
     Dates: start: 202207

REACTIONS (3)
  - Skin fissures [Unknown]
  - Dry skin [Unknown]
  - Therapeutic response decreased [Unknown]
